FAERS Safety Report 21391437 (Version 1)
Quarter: 2022Q3

REPORT INFORMATION
  Report Type: Spontaneous
  Country: US (occurrence: US)
  Receive Date: 20220929
  Receipt Date: 20220929
  Transmission Date: 20221026
  Serious: No
  Sender: FDA-Public Use
  Company Number: US-TAKEDA-2022TUS067196

PATIENT
  Sex: Female
  Weight: 74.6 kg

DRUGS (1)
  1. GAMMAGARD LIQUID [Suspect]
     Active Substance: HUMAN IMMUNOGLOBULIN G
     Indication: Product used for unknown indication
     Dosage: UNK UNK, Q3WEEKS
     Route: 050

REACTIONS (3)
  - Drug ineffective [Unknown]
  - Irritability [Unknown]
  - Product use complaint [Unknown]
